FAERS Safety Report 8153927-1 (Version None)
Quarter: 2012Q1

REPORT INFORMATION
  Report Type: 
  Country: None (occurrence: None)
  Receive Date: 20120221
  Receipt Date: 20120221
  Transmission Date: 20120608
  Serious: Yes (Other)
  Sender: FDA-Public Use
  Company Number: None

PATIENT
  Age: 51 Year
  Sex: Female
  Weight: 68 kg

DRUGS (21)
  1. MAGIC MOUTHWASH [Concomitant]
     Route: 048
  2. LYSINE [Concomitant]
  3. SIMVASTATIN [Concomitant]
  4. MULTIPLE VITAMIN [Concomitant]
  5. DIPHENHYDRAMINE HCL [Concomitant]
     Route: 042
  6. LORAZEPAM [Concomitant]
  7. DOCETAXEL [Suspect]
     Indication: BREAST CANCER
     Dosage: 180 MG
     Route: 042
     Dates: start: 20110830, end: 20110830
  8. FAMOTIDINE [Concomitant]
     Route: 048
  9. DEXAMETHASONE [Concomitant]
     Route: 042
  10. ZINC OXIDE -DESITIN [Concomitant]
  11. CALCIUM CHLORIDE-SODIUM PHOSPHATE MOUTHWASH [Concomitant]
     Route: 048
  12. HYDROCODONE BITARTRATE AND ACETAMINOPHEN [Concomitant]
     Route: 048
  13. FLUOXETINE [Concomitant]
  14. CALCIUM-VITAMIN D [Concomitant]
  15. POLYETHYLENE GLYCOL POWD, [Concomitant]
  16. OMEPRAZOLE [Concomitant]
  17. NEULASTA [Concomitant]
     Route: 051
  18. ZINC OXIDE -DESITIN [Concomitant]
  19. VALACYCLOVIR [Concomitant]
  20. FERROUS SULFATE [Concomitant]
  21. AMOXICILLIN AND CLAVULANATE POTASSIUM [Concomitant]

REACTIONS (7)
  - SKIN ULCER [None]
  - DERMATITIS [None]
  - STOMATITIS [None]
  - ERYTHEMA [None]
  - OEDEMA PERIPHERAL [None]
  - NEUROPATHY PERIPHERAL [None]
  - PAIN [None]
